FAERS Safety Report 25038599 (Version 1)
Quarter: 2025Q1

REPORT INFORMATION
  Report Type: Report from Study
  Country: CO (occurrence: CO)
  Receive Date: 20250304
  Receipt Date: 20250304
  Transmission Date: 20250409
  Serious: Yes (Death, Hospitalization)
  Sender: ABBVIE
  Company Number: CO-ABBVIE-6162741

PATIENT
  Age: 86 Year
  Sex: Female
  Weight: 37 kg

DRUGS (1)
  1. SKYRIZI [Suspect]
     Active Substance: RISANKIZUMAB-RZAA
     Indication: Psoriasis
     Route: 058
     Dates: start: 20220926, end: 20241127

REACTIONS (6)
  - Death [Fatal]
  - General symptom [Unknown]
  - Lung disorder [Unknown]
  - Unevaluable event [Unknown]
  - Decreased appetite [Unknown]
  - Oxygen saturation decreased [Unknown]

NARRATIVE: CASE EVENT DATE: 20250201
